FAERS Safety Report 5884163-7 (Version None)
Quarter: 2008Q3

REPORT INFORMATION
  Report Type: 
  Country: None (occurrence: None)
  Receive Date: 20080915
  Receipt Date: 20080903
  Transmission Date: 20090109
  Serious: Yes (Hospitalization)
  Sender: FDA-Public Use
  Company Number: FR-WYE-H05879608

PATIENT
  Age: 77 Year
  Sex: Female

DRUGS (3)
  1. INIPOMP [Suspect]
     Indication: PROPHYLAXIS
     Dosage: UNKNOWN
     Route: 048
     Dates: start: 20071026, end: 20071122
  2. CARTREX [Suspect]
     Indication: ARTHRALGIA
     Dosage: 100 MG, FREQUENCY UNSPECIFIED
     Route: 048
     Dates: start: 20071026, end: 20071122
  3. SULFASALAZINE [Suspect]
     Indication: ARTHRALGIA
     Dosage: 500 MG, FREQUENCY UNSPECIFIED
     Route: 048
     Dates: start: 20071026, end: 20071122

REACTIONS (4)
  - DRUG RASH WITH EOSINOPHILIA AND SYSTEMIC SYMPTOMS [None]
  - NEPHRITIS INTERSTITIAL [None]
  - RENAL FAILURE ACUTE [None]
  - RESPIRATORY DISORDER [None]
